FAERS Safety Report 18086734 (Version 1)
Quarter: 2020Q3

REPORT INFORMATION
  Report Type: Spontaneous
  Country: US (occurrence: US)
  Receive Date: 20200728
  Receipt Date: 20200728
  Transmission Date: 20201103
  Serious: Yes (Other)
  Sender: FDA-Public Use
  Company Number: None

PATIENT
  Age: 74 Year
  Sex: Female
  Weight: 97.65 kg

DRUGS (11)
  1. IBRANCE [Suspect]
     Active Substance: PALBOCICLIB
     Indication: BREAST CANCER
     Route: 048
     Dates: start: 20191226, end: 20200720
  2. IBRANCE [Suspect]
     Active Substance: PALBOCICLIB
     Indication: BONE CANCER
     Route: 048
     Dates: start: 20191226, end: 20200720
  3. ESOMEPRAZOLE. [Concomitant]
     Active Substance: ESOMEPRAZOLE MAGNESIUM
  4. LETROZOLE. [Concomitant]
     Active Substance: LETROZOLE
  5. ATENOLOL. [Concomitant]
     Active Substance: ATENOLOL
  6. FENOFIBRATE. [Concomitant]
     Active Substance: FENOFIBRATE
  7. ATORVASTATIN [Concomitant]
     Active Substance: ATORVASTATIN
  8. TRIAMTERENE?HCTZ [Concomitant]
     Active Substance: HYDROCHLOROTHIAZIDE\TRIAMTERENE
  9. FLUOXETINE [Concomitant]
     Active Substance: FLUOXETINE HYDROCHLORIDE
  10. KLOR?CON M20 [Concomitant]
     Active Substance: POTASSIUM CHLORIDE
  11. LEVOTHYROXINE. [Concomitant]
     Active Substance: LEVOTHYROXINE

REACTIONS (1)
  - Pneumonitis [None]

NARRATIVE: CASE EVENT DATE: 20200728
